FAERS Safety Report 9830073 (Version 4)
Quarter: 2014Q2

REPORT INFORMATION
  Report Type: Report from Study
  Country: IT (occurrence: IT)
  Receive Date: 20140120
  Receipt Date: 20140507
  Transmission Date: 20141212
  Serious: Yes (Other)
  Sender: FDA-Public Use
  Company Number: IT-ROCHE-1273965

PATIENT
  Age: 71 Year
  Sex: Female

DRUGS (19)
  1. VEMURAFENIB [Suspect]
     Indication: PAPILLARY THYROID CANCER
     Dosage: DATE OF LAST DOSE PRIOR TO SAE 29/AUG/2013.
     Route: 065
     Dates: start: 20121022, end: 20121120
  2. VEMURAFENIB [Suspect]
     Route: 065
     Dates: start: 20121121, end: 20130316
  3. VEMURAFENIB [Suspect]
     Route: 065
     Dates: start: 20130318, end: 20130329
  4. VEMURAFENIB [Suspect]
     Route: 065
     Dates: start: 20130330, end: 20130507
  5. VEMURAFENIB [Suspect]
     Route: 065
     Dates: start: 20130521, end: 20130830
  6. SOLDESAM [Concomitant]
     Indication: DYSPHAGIA
     Route: 030
     Dates: start: 20140113
  7. DIFLUCAN [Concomitant]
     Route: 048
     Dates: start: 20131217, end: 20140121
  8. LEVOTHYROXINE [Concomitant]
     Indication: HYPOTHYROIDISM
     Route: 048
     Dates: start: 2008, end: 20130924
  9. LEVOTHYROXINE [Concomitant]
     Route: 048
     Dates: start: 20130926
  10. DECADRON [Concomitant]
     Indication: DYSPHAGIA
     Route: 048
     Dates: start: 20131102, end: 20131118
  11. DECADRON [Concomitant]
     Route: 048
     Dates: start: 20131119, end: 20131212
  12. ZOTON [Concomitant]
     Indication: DYSPHAGIA
     Route: 048
     Dates: start: 20131102, end: 20140121
  13. IBUPROFEN [Concomitant]
     Indication: MYALGIA
     Route: 048
     Dates: start: 20121115, end: 20121117
  14. PARACETAMOL [Concomitant]
     Indication: PAIN
     Route: 048
     Dates: start: 20121109, end: 20121109
  15. PARACETAMOL [Concomitant]
     Indication: MYALGIA
     Route: 048
     Dates: start: 20121117, end: 20130115
  16. PARACETAMOL [Concomitant]
     Route: 048
     Dates: start: 20130418, end: 20130418
  17. PARACETAMOL [Concomitant]
     Route: 048
     Dates: start: 20130403, end: 20130403
  18. GASTROGEL (ITALY) [Concomitant]
     Indication: DYSPHAGIA
     Dosage: 1 SACHET
     Route: 048
     Dates: start: 20131022, end: 20131022
  19. AMOXICILLIN [Concomitant]
     Route: 048
     Dates: start: 20130418, end: 20130423

REACTIONS (2)
  - Skin lesion [Recovered/Resolved]
  - Skin haemorrhage [Recovered/Resolved]
